FAERS Safety Report 19958507 (Version 5)
Quarter: 2021Q4

REPORT INFORMATION
  Report Type: Spontaneous
  Country: CN (occurrence: None)
  Receive Date: 20211015
  Receipt Date: 20211125
  Transmission Date: 20220303
  Serious: Yes (Hospitalization)
  Sender: FDA-Public Use
  Company Number: 2021A772227

PATIENT
  Age: 45 Year
  Sex: Female
  Weight: 55 kg

DRUGS (4)
  1. SYMBICORT [Suspect]
     Active Substance: BUDESONIDE\FORMOTEROL FUMARATE DIHYDRATE
     Indication: Bronchitis
     Dosage: 320 MCG TWO TIMES A DAY
     Route: 055
     Dates: start: 20210913
  2. DEXTROMETHORPHAN [Concomitant]
     Active Substance: DEXTROMETHORPHAN
     Indication: Cough
     Dosage: THE PATIENT USED IT INTERMITTENTLY FOR 1-2 WEEKS
     Route: 048
  3. CODEINE [Concomitant]
     Active Substance: CODEINE
     Indication: Cough
     Dosage: THE PATIENT USED IT INTERMITTENTLY FOR 1-2 WEEKS
     Route: 048
  4. AMBROXOL HYDROCHLORIDE [Concomitant]
     Active Substance: AMBROXOL HYDROCHLORIDE
     Indication: Productive cough
     Dosage: THE PATIENT USED IT INTERMITTENTLY FOR 1-2 WEEKS
     Route: 048

REACTIONS (8)
  - Mental disorder [Not Recovered/Not Resolved]
  - Laryngospasm [Not Recovered/Not Resolved]
  - Tachycardia [Recovering/Resolving]
  - Throat tightness [Recovering/Resolving]
  - Cough [Recovering/Resolving]
  - Dyspnoea [Recovering/Resolving]
  - Chest discomfort [Unknown]
  - Multiple allergies [Unknown]

NARRATIVE: CASE EVENT DATE: 20210917
